FAERS Safety Report 6984601-2 (Version None)
Quarter: 2010Q3

REPORT INFORMATION
  Report Type: 
  Country: None (occurrence: None)
  Receive Date: 20100915
  Receipt Date: 20100902
  Transmission Date: 20110219
  Serious: Yes (Hospitalization)
  Sender: FDA-Public Use
  Company Number: FR-PFIZER INC-2010110576

PATIENT
  Age: 70 Year
  Sex: Male

DRUGS (1)
  1. SOLU-MEDROL [Suspect]
     Dosage: 1 DF, SINGLE
     Route: 042
     Dates: start: 20100802, end: 20100802

REACTIONS (3)
  - HYPOTENSION [None]
  - PRURITUS [None]
  - RASH [None]
